FAERS Safety Report 15850899 (Version 1)
Quarter: 2019Q1

REPORT INFORMATION
  Report Type: Other
  Country: FR (occurrence: FR)
  Receive Date: 20190121
  Receipt Date: 20190121
  Transmission Date: 20190417
  Serious: Yes (Death)
  Sender: FDA-Public Use
  Company Number: FR-CELLTRION INC.-2019FR018032

PATIENT

DRUGS (9)
  1. AMLODIPINE [Concomitant]
     Active Substance: AMLODIPINE BESYLATE
     Dosage: 10 MG, DAILY
     Route: 048
  2. EUPRESSYL [Concomitant]
     Active Substance: URAPIDIL
     Dosage: 3 MG, DAILY
     Route: 048
  3. TRUXIMA [Suspect]
     Active Substance: RITUXIMAB-ABBS
     Indication: MANTLE CELL LYMPHOMA RECURRENT
     Dosage: 595 MG, UNK
     Route: 042
     Dates: start: 20180606, end: 20180606
  4. COUMADINE [Concomitant]
     Active Substance: WARFARIN SODIUM
     Dosage: 1 DF, DAILY
     Route: 048
  5. CORDARONE [Concomitant]
     Active Substance: AMIODARONE HYDROCHLORIDE
     Dosage: UNK
     Route: 048
  6. ARANESP [Concomitant]
     Active Substance: DARBEPOETIN ALFA
     Dosage: UNK
     Route: 058
  7. IMBRUVICA [Suspect]
     Active Substance: IBRUTINIB
     Indication: MANTLE CELL LYMPHOMA RECURRENT
     Dosage: 140 MG, DAILY
     Route: 048
     Dates: start: 20180606, end: 20180606
  8. LASILIX [Concomitant]
     Active Substance: FUROSEMIDE
     Dosage: 4 MG, DAILY
     Route: 048
  9. LEVOTHYROX [Concomitant]
     Active Substance: LEVOTHYROXINE
     Dosage: 1 DF (25 MCG), DAILY
     Route: 048

REACTIONS (7)
  - Abdominal pain [Fatal]
  - Hyperthermia malignant [Fatal]
  - Chills [Fatal]
  - Tumour lysis syndrome [Fatal]
  - Nausea [Fatal]
  - Cold sweat [Fatal]
  - Vomiting [Fatal]

NARRATIVE: CASE EVENT DATE: 20180606
